FAERS Safety Report 7349886-1 (Version None)
Quarter: 2011Q1

REPORT INFORMATION
  Report Type: 
  Country: None (occurrence: None)
  Receive Date: 20110222
  Receipt Date: 20101026
  Transmission Date: 20110831
  Serious: Yes (Hospitalization)
  Sender: FDA-Public Use
  Company Number: OMX-2010-00119

PATIENT

DRUGS (2)
  1. EVICEL [Suspect]
     Indication: HAEMOSTASIS
  2. APPLICATOR [Concomitant]

REACTIONS (2)
  - PRODUCT QUALITY ISSUE [None]
  - PULMONARY EMBOLISM [None]
